FAERS Safety Report 9832830 (Version 1)
Quarter: 2014Q1

REPORT INFORMATION
  Report Type: Report from Study
  Country: ES (occurrence: ES)
  Receive Date: 20140121
  Receipt Date: 20140121
  Transmission Date: 20141002
  Serious: Yes (Hospitalization)
  Sender: FDA-Public Use
  Company Number: ES-GLAXOSMITHKLINE-Z0010108C

PATIENT
  Age: 66 Year
  Sex: Male
  Weight: 63 kg

DRUGS (1)
  1. DABRAFENIB [Suspect]
     Indication: METASTATIC MALIGNANT MELANOMA
     Dosage: 150MG TWICE PER DAY
     Route: 048
     Dates: start: 20110509, end: 20130908

REACTIONS (3)
  - Pancreatic necrosis [Recovered/Resolved]
  - Pancreatitis acute [Recovered/Resolved]
  - Abdominal infection [Recovered/Resolved]
